FAERS Safety Report 17561756 (Version 1)
Quarter: 2020Q1

REPORT INFORMATION
  Report Type: Spontaneous
  Country: US (occurrence: US)
  Receive Date: 20200319
  Receipt Date: 20200319
  Transmission Date: 20200409
  Serious: No
  Sender: FDA-Public Use
  Company Number: US-PERRIGO-19US011661

PATIENT
  Age: 46 Year
  Sex: Female
  Weight: 90.72 kg

DRUGS (2)
  1. LORATADINE AND PSEUDOEPHEDRINE SULFATE [Suspect]
     Active Substance: LORATADINE\PSEUDOEPHEDRINE SULFATE
     Indication: ASTHMA
  2. LORATADINE AND PSEUDOEPHEDRINE SULFATE [Suspect]
     Active Substance: LORATADINE\PSEUDOEPHEDRINE SULFATE
     Indication: SEASONAL ALLERGY
     Dosage: 1 TABLET, QD
     Route: 048

REACTIONS (8)
  - Hyperhidrosis [Unknown]
  - Pollakiuria [Unknown]
  - Chills [Unknown]
  - Dry mouth [Unknown]
  - Dizziness [Unknown]
  - Off label use [Unknown]
  - Blood pressure increased [Unknown]
  - Feeling jittery [Unknown]
